FAERS Safety Report 6839322-3 (Version None)
Quarter: 2010Q3

REPORT INFORMATION
  Report Type: 
  Country: None (occurrence: None)
  Receive Date: 20100714
  Receipt Date: 20100701
  Transmission Date: 20110219
  Serious: Yes (Hospitalization)
  Sender: FDA-Public Use
  Company Number: PHHY2010US41923

PATIENT
  Sex: Male

DRUGS (9)
  1. RECLAST [Suspect]
     Indication: OSTEOPENIA
     Dosage: UNK
     Dates: start: 20100614
  2. LEVOXYL [Concomitant]
  3. COZAAR [Concomitant]
  4. COMBIVENT [Concomitant]
  5. ADVAIR DISKUS 100/50 [Concomitant]
  6. ASTELIN [Concomitant]
  7. FLONASE [Concomitant]
  8. CALCIUM [Concomitant]
  9. VITAMIN D [Concomitant]

REACTIONS (3)
  - BONE PAIN [None]
  - PAIN [None]
  - THYROIDECTOMY [None]
